FAERS Safety Report 9806154 (Version 6)
Quarter: 2016Q4

REPORT INFORMATION
  Report Type: Spontaneous
  Country: US (occurrence: US)
  Receive Date: 20140109
  Receipt Date: 20161128
  Transmission Date: 20170207
  Serious: Yes (Hospitalization)
  Sender: FDA-Public Use
  Company Number: US-PFIZER INC-2014001755

PATIENT
  Age: 59 Year
  Sex: Male
  Weight: 84.35 kg

DRUGS (39)
  1. VFEND [Suspect]
     Active Substance: VORICONAZOLE
     Indication: PULMONARY MYCOSIS
     Dosage: 200 MG, 2X/DAY
     Route: 048
     Dates: start: 20130613
  2. SEPTRA [Concomitant]
     Active Substance: SULFAMETHOXAZOLE\TRIMETHOPRIM
     Dosage: 1 DF, DAILY (MONDAYS, WEDNESDAYS, FRIDAYS)[SULFAMETHOXAZOLE-400MG]/[TRIMETHOPRIM-80 MG]
     Dates: start: 20160912
  3. VITAMIN D /00107901/ [Concomitant]
     Active Substance: ERGOCALCIFEROL
     Dosage: 2000 IU, DAILY
     Route: 048
  4. OMEPRAZOLE. [Concomitant]
     Active Substance: OMEPRAZOLE
     Dosage: 20 MG, ALTERNATE DAY
     Route: 048
  5. TYLENOL 8 HR [Concomitant]
     Active Substance: ACETAMINOPHEN
     Dosage: 650 MG, AS NEEDED (EVERY 8 HOURS)
  6. CYCLOSPORIN [Concomitant]
     Active Substance: CYCLOSPORINE
     Dosage: 25 MG, 2X/DAY
     Route: 048
     Dates: start: 20160912
  7. NORVASC [Concomitant]
     Active Substance: AMLODIPINE BESYLATE
     Dosage: 5 MG, DAILY
     Route: 048
     Dates: start: 20160308
  8. IRON /00023503/ [Concomitant]
     Active Substance: IRON
     Dosage: 325 MG, DAILY (WITH BREAKFAST) (65 FE)
     Route: 048
  9. LASIX [Concomitant]
     Active Substance: FUROSEMIDE
     Dosage: 40 MG, DAILY
     Route: 048
  10. CELLCEPT [Concomitant]
     Active Substance: MYCOPHENOLATE MOFETIL\MYCOPHENOLATE MOFETIL HYDROCHLORIDE
     Dosage: 250 MG, 2X/DAY
     Route: 048
     Dates: start: 20161114
  11. GLUCOSAMINE + CHONDROITIN COMPLEX [Concomitant]
     Dosage: 1500-1200 MG DAILY
     Route: 048
  12. ZOFRAN [Concomitant]
     Active Substance: ONDANSETRON HYDROCHLORIDE
     Indication: NAUSEA
     Dosage: 4 MG, AS NEEDED (EVERY 6 HOURS)
  13. PRAVACHOL [Concomitant]
     Active Substance: PRAVASTATIN SODIUM
     Dosage: 40 MG, DAILY
     Route: 048
  14. LEVAQUIN [Concomitant]
     Active Substance: LEVOFLOXACIN
     Dosage: UNK
  15. LIDEX [Concomitant]
     Active Substance: FLUOCINONIDE
     Dosage: 0.05 G, 2X/DAY
     Route: 061
  16. FOLVITE /00024201/ [Concomitant]
     Dosage: 1 MG, DAILY
     Route: 048
  17. OSCAL D [Concomitant]
     Active Substance: CALCIUM CARBONATE\CHOLECALCIFEROL
     Dosage: 1 DF, 2X/DAY
     Route: 048
  18. ACIDOPHILUS PROBIOTIC [Concomitant]
     Dosage: 100 MG, 1X/DAY (TAKES WHEN HE IS NOT ON AN ANTIBIOTIC)
     Dates: start: 20160907
  19. VFEND [Suspect]
     Active Substance: VORICONAZOLE
     Dosage: 300 MG, UNK
     Route: 048
  20. LANTUS [Concomitant]
     Active Substance: INSULIN GLARGINE
     Dosage: 40 IU, 1X/DAY (AT BEDTIME)
     Route: 058
  21. NOVOLOG [Concomitant]
     Active Substance: INSULIN ASPART
     Dosage: UNK UNK, 4X/DAY (WITH MEALS AND NIGHTLY)
     Route: 058
  22. ULTRAM [Concomitant]
     Active Substance: TRAMADOL HYDROCHLORIDE
     Dosage: 50 MG, AS NEEDED (EVERY 6 HOURS)
     Route: 048
  23. AMOXIL [Concomitant]
     Active Substance: AMOXICILLIN
     Dosage: 1500 MG, AS NEEDED (BEFORE DENTAL APPL.)
     Route: 048
  24. FOSAMAX [Concomitant]
     Active Substance: ALENDRONATE SODIUM
     Dosage: 70 MG, WEEKLY
     Route: 048
  25. METHOTREXATE SODIUM. [Concomitant]
     Active Substance: METHOTREXATE SODIUM
     Dosage: 20 MG, WEEKLY
     Route: 048
  26. VFEND [Suspect]
     Active Substance: VORICONAZOLE
     Dosage: 150 MG, 2X/DAY
     Route: 048
     Dates: start: 20160607
  27. BACTRIM [Concomitant]
     Active Substance: SULFAMETHOXAZOLE\TRIMETHOPRIM
     Dosage: 1 DF, DAILY (MONDAYS, WEDNESDAYS, FRIDAYS)[SULFAMETHOXAZOLE-400MG]/[TRIMETHOPRIM-80 MG]
     Dates: start: 20160912
  28. NOVOLOG [Concomitant]
     Active Substance: INSULIN ASPART
     Dosage: UNK (100 UNITS/ML VIAL)
     Dates: start: 20150122
  29. PLAQUENIL [Concomitant]
     Active Substance: HYDROXYCHLOROQUINE SULFATE
     Dosage: 200 MG, DAILY
     Route: 048
  30. FISH OIL W/OMEGA-3 FATTY ACIDS [Concomitant]
     Active Substance: FISH OIL\OMEGA-3 FATTY ACIDS
     Dosage: 1000 MG, UNK
  31. NITROSTAT [Concomitant]
     Active Substance: NITROGLYCERIN
     Dosage: 0.4 MG, AS NEEDED (PLACE 1 TABLET (0.4 MG) UNDER THE TONGUE EVERY 5 MINUTES)
     Route: 060
     Dates: start: 20140122
  32. FENOFIBRATE. [Concomitant]
     Active Substance: FENOFIBRATE
     Dosage: 54 MG, DAILY
     Route: 048
     Dates: start: 20151110
  33. WARFARIN SODIUM. [Concomitant]
     Active Substance: WARFARIN SODIUM
     Dosage: 2 MG, DAILY
     Route: 048
  34. VFEND [Suspect]
     Active Substance: VORICONAZOLE
     Indication: CRYPTOCOCCOSIS
     Dosage: ONE TABLET EVERY MORNING AND HALF TABLET EVERY EVENING
     Route: 048
  35. NEORAL [Concomitant]
     Active Substance: CYCLOSPORINE
     Dosage: UNK
  36. ASPIRIN /00002701/ [Concomitant]
     Active Substance: ASPIRIN
     Dosage: 81 MG, UNK
     Dates: start: 20160107
  37. LOPRESSOR [Concomitant]
     Active Substance: METOPROLOL TARTRATE
     Dosage: 200 MG, DAILY
     Route: 048
  38. ZOFRAN [Concomitant]
     Active Substance: ONDANSETRON HYDROCHLORIDE
     Indication: VOMITING
  39. CIPRO [Concomitant]
     Active Substance: CIPROFLOXACIN HYDROCHLORIDE
     Dosage: 250 MG, DAILY
     Route: 048
     Dates: start: 20161020

REACTIONS (4)
  - Product use issue [Unknown]
  - Lung disorder [Unknown]
  - Body temperature increased [Unknown]
  - Asthenia [Unknown]
